FAERS Safety Report 9721288 (Version 4)
Quarter: 2014Q2

REPORT INFORMATION
  Report Type: Spontaneous
  Country: US (occurrence: US)
  Receive Date: 20131129
  Receipt Date: 20140609
  Transmission Date: 20141212
  Serious: No
  Sender: FDA-Public Use
  Company Number: US-PFIZER INC-2013339683

PATIENT
  Age: 47 Year
  Sex: Female

DRUGS (7)
  1. LYRICA [Suspect]
     Indication: FIBROMYALGIA
     Dosage: UNK
  2. LYRICA [Suspect]
     Dosage: 150 MG, 3X/DAY
     Route: 048
  3. XANAX [Concomitant]
     Dosage: 1 MG, UNK
  4. BABY ASPIRIN [Concomitant]
     Dosage: UNK
  5. ZANAFLEX [Concomitant]
     Dosage: UNK, AS NEEDED
  6. PHENERGAN [Concomitant]
     Indication: NAUSEA
     Dosage: UNK
  7. CYMBALTA [Concomitant]
     Dosage: UNK

REACTIONS (3)
  - Nasopharyngitis [Unknown]
  - Oropharyngeal pain [Unknown]
  - Malaise [Unknown]
